FAERS Safety Report 5702738-2 (Version None)
Quarter: 2008Q2

REPORT INFORMATION
  Report Type: 
  Country: None (occurrence: None)
  Receive Date: 20080411
  Receipt Date: 20080408
  Transmission Date: 20081010
  Serious: Yes (Life-Threatening, Hospitalization)
  Sender: FDA-Public Use
  Company Number: B0509770A

PATIENT
  Sex: Male

DRUGS (1)
  1. SUPACEF [Suspect]
     Indication: PROPHYLAXIS
     Route: 065
     Dates: start: 20080219, end: 20080219

REACTIONS (4)
  - CHEST PAIN [None]
  - DYSPNOEA [None]
  - PHARMACEUTICAL PRODUCT COMPLAINT [None]
  - RASH [None]
